FAERS Safety Report 5879443-5 (Version None)
Quarter: 2008Q3

REPORT INFORMATION
  Report Type: 
  Country: None (occurrence: None)
  Receive Date: 20080912
  Receipt Date: 20080905
  Transmission Date: 20090109
  Serious: Yes (Hospitalization)
  Sender: FDA-Public Use
  Company Number: B0536612A

PATIENT
  Age: 87 Year
  Sex: Female

DRUGS (4)
  1. ZINACEF [Suspect]
     Indication: DRUG USE FOR UNKNOWN INDICATION
     Route: 031
     Dates: end: 20080402
  2. MEFENACID [Suspect]
     Indication: DRUG USE FOR UNKNOWN INDICATION
     Route: 065
     Dates: start: 20080331, end: 20080331
  3. ACULAR [Concomitant]
     Dates: start: 20080401, end: 20080401
  4. UNKNOWN DRUG [Concomitant]

REACTIONS (4)
  - DIARRHOEA [None]
  - INFLAMMATION [None]
  - PYREXIA [None]
  - VOMITING [None]
